FAERS Safety Report 15654049 (Version 1)
Quarter: 2018Q4

REPORT INFORMATION
  Report Type: Spontaneous
  Country: US (occurrence: US)
  Receive Date: 20181124
  Receipt Date: 20181124
  Transmission Date: 20190205
  Serious: Yes (Other)
  Sender: FDA-Public Use
  Company Number: None

PATIENT
  Age: 33 Year
  Sex: Female

DRUGS (2)
  1. CYMBALTA [Concomitant]
     Active Substance: DULOXETINE HYDROCHLORIDE
  2. LEVOFLOXACIN. [Suspect]
     Active Substance: LEVOFLOXACIN
     Indication: PNEUMONIA
     Dates: start: 20181121, end: 20181124

REACTIONS (11)
  - Confusional state [None]
  - Neuropathy peripheral [None]
  - Paraesthesia [None]
  - Burning sensation [None]
  - Fear [None]
  - Mental impairment [None]
  - Paranoia [None]
  - Pain in extremity [None]
  - Nightmare [None]
  - Feeling abnormal [None]
  - Product dose omission [None]

NARRATIVE: CASE EVENT DATE: 20181123
